FAERS Safety Report 8460544-2 (Version None)
Quarter: 2012Q2

REPORT INFORMATION
  Report Type: 
  Country: None (occurrence: None)
  Receive Date: 20120622
  Receipt Date: 20120613
  Transmission Date: 20120825
  Serious: Yes (Hospitalization)
  Sender: FDA-Public Use
  Company Number: ES-ASTRAZENECA-2012SE39951

PATIENT
  Age: 92 Year
  Sex: Female

DRUGS (5)
  1. ATACAND [Suspect]
     Indication: HYPERTENSION
     Route: 048
     Dates: start: 20110902
  2. FUROSEMIDE [Suspect]
     Indication: HYPERTENSION
     Route: 048
     Dates: start: 20111024
  3. LANTUS [Concomitant]
  4. REPAGLINIDE [Concomitant]
  5. ASPIRIN [Concomitant]
     Route: 048

REACTIONS (2)
  - SYNCOPE [None]
  - DRUG INTERACTION [None]
